FAERS Safety Report 12275942 (Version 3)
Quarter: 2018Q4

REPORT INFORMATION
  Report Type: Spontaneous
  Country: JP (occurrence: JP)
  Receive Date: 20160418
  Receipt Date: 20181225
  Transmission Date: 20190204
  Serious: Yes (Death, Life-Threatening, Hospitalization, Other)
  Sender: FDA-Public Use
  Company Number: JP-ACCORD-039622

PATIENT
  Age: 71 Year
  Sex: Male
  Weight: 51.7 kg

DRUGS (4)
  1. PANITUMUMAB [Suspect]
     Active Substance: PANITUMUMAB
     Indication: RECTAL CANCER RECURRENT
     Dates: start: 201505
  2. OXALIPLATIN. [Suspect]
     Active Substance: OXALIPLATIN
     Indication: RECTAL CANCER RECURRENT
     Dates: start: 201505
  3. FLUOROURACIL. [Suspect]
     Active Substance: FLUOROURACIL
     Indication: RECTAL CANCER RECURRENT
     Dosage: 5-FU 46-HOUR CONTINUOUS INTRAVENOUS INFUSION
     Route: 042
     Dates: start: 201505
  4. LEVOFOLINATE [Suspect]
     Active Substance: LEVOLEUCOVORIN CALCIUM
     Indication: RECTAL CANCER RECURRENT
     Dates: start: 201505

REACTIONS (3)
  - Cardio-respiratory arrest [Fatal]
  - Bone marrow failure [Unknown]
  - Thrombotic thrombocytopenic purpura [Fatal]
